FAERS Safety Report 20404218 (Version 1)
Quarter: 2022Q1

REPORT INFORMATION
  Report Type: Spontaneous
  Country: US (occurrence: None)
  Receive Date: 20220128
  Receipt Date: 20220128
  Transmission Date: 20220424
  Serious: Yes (Hospitalization)
  Sender: FDA-Public Use
  Company Number: None

PATIENT
  Sex: Female

DRUGS (1)
  1. ICATIBANT ACETATE [Suspect]
     Active Substance: ICATIBANT ACETATE
     Indication: Complement fixation abnormal
     Dosage: FREQUENCY : AS NEEDED;?
     Route: 058
     Dates: start: 20200128

REACTIONS (5)
  - Vulvovaginal swelling [None]
  - Abdominal discomfort [None]
  - Peripheral swelling [None]
  - Fall [None]
  - Face injury [None]
